FAERS Safety Report 23396888 (Version 1)
Quarter: 2024Q1

REPORT INFORMATION
  Report Type: Spontaneous
  Country: US (occurrence: None)
  Receive Date: 20240111
  Receipt Date: 20240111
  Transmission Date: 20240409
  Serious: Yes (Death)
  Sender: FDA-Public Use
  Company Number: None

PATIENT
  Age: 59 Year
  Sex: Female

DRUGS (1)
  1. SPRYCEL [Suspect]
     Active Substance: DASATINIB
     Indication: Acute leukaemia
     Dosage: FREQUENCY : DAILY;?
     Route: 048
     Dates: start: 20230831, end: 20240104

REACTIONS (1)
  - Death [None]

NARRATIVE: CASE EVENT DATE: 20240104
